FAERS Safety Report 10486773 (Version 1)
Quarter: 2014Q4

REPORT INFORMATION
  Report Type: Spontaneous
  Country: US (occurrence: US)
  Receive Date: 20141001
  Receipt Date: 20141001
  Transmission Date: 20150528
  Serious: No
  Sender: FDA-Public Use
  Company Number: US-BAYER-2014-139845

PATIENT
  Sex: Male

DRUGS (4)
  1. ADVIL [Suspect]
     Active Substance: IBUPROFEN
     Indication: PAIN
     Dosage: UNK, PRN
  2. ASPIRIN. [Suspect]
     Active Substance: ASPIRIN
     Dosage: 81 MG, QD
  3. CIPRO [Suspect]
     Active Substance: CIPROFLOXACIN HYDROCHLORIDE
     Indication: TOOTH EXTRACTION
     Dosage: 500 MG, UNK
     Route: 048
     Dates: start: 20140916
  4. LISINOPRIL. [Suspect]
     Active Substance: LISINOPRIL
     Dosage: 20 ML, QD

REACTIONS (1)
  - Choking sensation [Recovered/Resolved]

NARRATIVE: CASE EVENT DATE: 20140916
